FAERS Safety Report 6907472-9 (Version None)
Quarter: 2010Q3

REPORT INFORMATION
  Report Type: 
  Country: None (occurrence: None)
  Receive Date: 20100805
  Receipt Date: 20100729
  Transmission Date: 20110219
  Serious: No
  Sender: FDA-Public Use
  Company Number: US-BIOGENIDEC-2010BI012009

PATIENT
  Age: 49 Year
  Sex: Female

DRUGS (1)
  1. TYSABRI [Suspect]
     Indication: MULTIPLE SCLEROSIS
     Route: 042
     Dates: start: 20091104

REACTIONS (7)
  - ASTHENIA [None]
  - CHILLS [None]
  - DIARRHOEA [None]
  - FEELING HOT [None]
  - HEADACHE [None]
  - PAIN [None]
  - WEIGHT INCREASED [None]
